FAERS Safety Report 8108029-7 (Version None)
Quarter: 2012Q1

REPORT INFORMATION
  Report Type: 
  Country: None (occurrence: None)
  Receive Date: 20120202
  Receipt Date: 20120127
  Transmission Date: 20120608
  Serious: Yes (Hospitalization)
  Sender: FDA-Public Use
  Company Number: IT-JNJFOC-20120112417

PATIENT
  Sex: Male

DRUGS (10)
  1. PALIPERIDONE PALMITATE [Suspect]
     Indication: SCHIZOPHRENIA
     Dates: start: 20111031
  2. LEVOSULPIRIDE [Concomitant]
     Indication: NAUSEA
  3. ACETAMINOPHEN [Concomitant]
     Indication: ARTHROPATHY
  4. KETOPROFEN [Concomitant]
     Indication: ARTHROPATHY
  5. CHLORPROMAZINE HCL [Concomitant]
     Indication: ANXIETY
  6. PERICIAZINE [Concomitant]
     Indication: ANXIETY
  7. DIAZEPAM [Concomitant]
     Indication: ANXIETY
  8. CLOTIAPINE [Concomitant]
     Indication: INSOMNIA
  9. LANSOPRAZOLE [Concomitant]
     Indication: GASTROINTESTINAL DISORDER THERAPY
  10. IBUPROFEN [Concomitant]
     Indication: ARTHROPATHY

REACTIONS (1)
  - ANXIETY [None]
